FAERS Safety Report 6979411-6 (Version None)
Quarter: 2010Q3

REPORT INFORMATION
  Report Type: 
  Country: None (occurrence: None)
  Receive Date: 20100910
  Receipt Date: 20100910
  Transmission Date: 20110219
  Serious: Yes (Life-Threatening)
  Sender: FDA-Public Use
  Company Number: None

PATIENT
  Age: 44 Year
  Sex: Female
  Weight: 70.3075 kg

DRUGS (1)
  1. AMBIEN CR [Suspect]
     Indication: INSOMNIA
     Dosage: 12.5 1 DAILY
     Dates: start: 20080101

REACTIONS (3)
  - AMNESIA [None]
  - SLEEP-RELATED EATING DISORDER [None]
  - SOMNAMBULISM [None]
